FAERS Safety Report 25252199 (Version 1)
Quarter: 2025Q2

REPORT INFORMATION
  Report Type: Spontaneous
  Country: RO (occurrence: RO)
  Receive Date: 20250429
  Receipt Date: 20250429
  Transmission Date: 20250716
  Serious: Yes (Other)
  Sender: VERITY PHARMACEUTICALS INC.
  Company Number: RO-VER-202500001

PATIENT
  Age: 62 Year
  Sex: Male

DRUGS (5)
  1. TRIPTORELIN PAMOATE [Suspect]
     Active Substance: TRIPTORELIN PAMOATE
     Indication: Prostate cancer metastatic
     Route: 065
     Dates: start: 2019
  2. ZOLEDRONIC ACID [Concomitant]
     Active Substance: ZOLEDRONIC ACID
     Indication: Product used for unknown indication
     Dosage: INTRAVENOUS (NOT OTHERWISE SPECIFIED)
     Route: 065
     Dates: start: 202112
  3. PREDNISOLONE [Concomitant]
     Active Substance: PREDNISOLONE
     Indication: Product used for unknown indication
     Route: 065
     Dates: start: 202112
  4. ABIRATERONE ACETATE [Concomitant]
     Active Substance: ABIRATERONE ACETATE
     Indication: Product used for unknown indication
     Dosage: 250 MG X 4/DAY
     Route: 065
     Dates: start: 202112
  5. BICALUTAMIDE [Suspect]
     Active Substance: BICALUTAMIDE
     Indication: Prostate cancer metastatic
     Route: 065
     Dates: start: 2019

REACTIONS (13)
  - Malignant neoplasm progression [Unknown]
  - Abdominal pain upper [Unknown]
  - Disorientation [Unknown]
  - Fatigue [Unknown]
  - Hot flush [Unknown]
  - Hypertension [Unknown]
  - Prostatic specific antigen increased [Unknown]
  - Decreased appetite [Unknown]
  - Dysgeusia [Unknown]
  - Nausea [Unknown]
  - Asthenia [Unknown]
  - Bone pain [Unknown]
  - Weight increased [Unknown]

NARRATIVE: CASE EVENT DATE: 20211101
